FAERS Safety Report 7792841-8 (Version None)
Quarter: 2011Q4

REPORT INFORMATION
  Report Type: 
  Country: None (occurrence: None)
  Receive Date: 20111003
  Receipt Date: 20110922
  Transmission Date: 20120403
  Serious: Yes (Other)
  Sender: FDA-Public Use
  Company Number: IE-GLAXOSMITHKLINE-B0727204A

PATIENT
  Sex: Female
  Weight: 65 kg

DRUGS (4)
  1. VOTRIENT [Suspect]
     Indication: RENAL CANCER METASTATIC
     Dosage: 800MG PER DAY
     Route: 048
     Dates: start: 20110401, end: 20110525
  2. DEXAMETHASONE [Concomitant]
     Indication: ENERGY INCREASED
     Dosage: 4MG PER DAY
     Route: 048
     Dates: start: 20101201
  3. LANSOPRAZOLE [Concomitant]
     Indication: PROPHYLAXIS
     Dosage: 30MG PER DAY
     Route: 048
     Dates: start: 20101201
  4. AMLODIPINE [Concomitant]
     Indication: HYPERTENSION
     Dosage: 10MG PER DAY
     Route: 048
     Dates: start: 20110101

REACTIONS (10)
  - LYMPHANGITIS [None]
  - RETROPERITONEAL LYMPHADENOPATHY [None]
  - SEROSITIS [None]
  - SWELLING [None]
  - ASPARTATE AMINOTRANSFERASE INCREASED [None]
  - PLEURAL EFFUSION [None]
  - EFFUSION [None]
  - LIVER FUNCTION TEST ABNORMAL [None]
  - ALANINE AMINOTRANSFERASE INCREASED [None]
  - PERICARDIAL EFFUSION [None]
